FAERS Safety Report 19658690 (Version 3)
Quarter: 2021Q3

REPORT INFORMATION
  Report Type: Spontaneous
  Country: US (occurrence: US)
  Receive Date: 20210804
  Receipt Date: 20210908
  Transmission Date: 20211014
  Serious: No
  Sender: FDA-Public Use
  Company Number: US-ASTRAZENECA-2021A611702

PATIENT
  Age: 68 Year
  Sex: Female
  Weight: 114.3 kg

DRUGS (3)
  1. CIMYARL [Concomitant]
     Indication: DIABETES MELLITUS
  2. BYDUREON BCISE [Suspect]
     Active Substance: EXENATIDE
     Indication: DIABETES MELLITUS
     Route: 058
  3. METFORMIN [Concomitant]
     Active Substance: METFORMIN HYDROCHLORIDE
     Indication: DIABETES MELLITUS

REACTIONS (9)
  - Product dose omission issue [Unknown]
  - Wrong technique in device usage process [Unknown]
  - Stress [Unknown]
  - Glycosylated haemoglobin increased [Unknown]
  - Needle issue [Unknown]
  - Weight decreased [Unknown]
  - Feeding disorder [Unknown]
  - Device leakage [Unknown]
  - Device malfunction [Unknown]
